FAERS Safety Report 8926576 (Version 1)
Quarter: 2012Q4

REPORT INFORMATION
  Report Type: 
  Country: US (occurrence: US)
  Receive Date: 20121127
  Receipt Date: 20121127
  Transmission Date: 20130627
  Serious: Yes (Death)
  Sender: FDA-Public Use
  Company Number: PHHY2012US107963

PATIENT
  Age: 48 Year
  Sex: Female

DRUGS (4)
  1. OXYCODONE HYDROCHLORIDE [Suspect]
  2. ALPRAZOLAM [Suspect]
  3. MIRTAZAPINE [Suspect]
  4. OXYMORPHONE [Suspect]

REACTIONS (1)
  - Toxicity to various agents [Fatal]
